FAERS Safety Report 23841537 (Version 1)
Quarter: 2024Q2

REPORT INFORMATION
  Report Type: Other
  Country: US (occurrence: US)
  Receive Date: 20240510
  Receipt Date: 20240510
  Transmission Date: 20240716
  Serious: Yes (Hospitalization, Other)
  Sender: FDA-Public Use
  Company Number: US-Omnivium Pharmaceuticals LLC-2156841

PATIENT
  Age: 42 Year
  Sex: Male

DRUGS (2)
  1. NUMBRINO [Suspect]
     Active Substance: COCAINE HYDROCHLORIDE
     Indication: Product used for unknown indication
     Route: 065
  2. TESTOSTERONE [Suspect]
     Active Substance: TESTOSTERONE
     Route: 065

REACTIONS (6)
  - Portal vein thrombosis [Recovering/Resolving]
  - Drug interaction [Unknown]
  - Substance use [Unknown]
  - Pneumonia [Recovering/Resolving]
  - Rectal haemorrhage [Recovering/Resolving]
  - Portal vein cavernous transformation [Recovering/Resolving]
